FAERS Safety Report 16189753 (Version 1)
Quarter: 2019Q2

REPORT INFORMATION
  Report Type: Spontaneous
  Country: GB (occurrence: GB)
  Receive Date: 20190412
  Receipt Date: 20190412
  Transmission Date: 20190711
  Serious: Yes (Other)
  Sender: FDA-Public Use
  Company Number: GB-TORRENT-00003207

PATIENT
  Age: 10 Year
  Sex: Female
  Weight: 40 kg

DRUGS (1)
  1. MONTELUKAST [Suspect]
     Active Substance: MONTELUKAST SODIUM
     Indication: ASTHMA
     Route: 048
     Dates: start: 201401, end: 201402

REACTIONS (5)
  - Pallor [Recovered/Resolved]
  - Cough [Recovered/Resolved]
  - Lethargy [Recovered/Resolved]
  - Depression [Recovered/Resolved]
  - Sputum increased [Recovered/Resolved]
